FAERS Safety Report 8571610 (Version 2)
Quarter: 2012Q4

REPORT INFORMATION
  Report Type: 
  Country: ES (occurrence: ES)
  Receive Date: 20120521
  Receipt Date: 20120830
  Transmission Date: 20130627
  Serious: Yes (Hospitalization, Other)
  Sender: FDA-Public Use
  Company Number: ES-GLAXOSMITHKLINE-B0802462A

PATIENT
  Age: 48 Year
  Sex: Male

DRUGS (1)
  1. LAMICTAL [Suspect]
     Indication: DEPRESSION
     Dosage: 50MG per day
     Route: 048
     Dates: start: 20120328, end: 20120428

REACTIONS (11)
  - Hypertransaminasaemia [Recovered/Resolved]
  - Petechiae [Recovered/Resolved]
  - Pyrexia [Recovered/Resolved]
  - Eosinophilia [Unknown]
  - Feeling abnormal [Unknown]
  - Pruritus [Recovered/Resolved]
  - Rash [Recovered/Resolved]
  - Asthenia [Unknown]
  - Decreased appetite [Unknown]
  - Hepatosplenomegaly [Unknown]
  - Dry skin [Unknown]
